FAERS Safety Report 7856306-7 (Version None)
Quarter: 2011Q4

REPORT INFORMATION
  Report Type: 
  Country: None (occurrence: None)
  Receive Date: 20111026
  Receipt Date: 20111005
  Transmission Date: 20120403
  Serious: Yes (Other)
  Sender: FDA-Public Use
  Company Number: PHHY2011US40424

PATIENT
  Sex: Female

DRUGS (8)
  1. DEPAKOTE [Concomitant]
  2. AFINITOR [Suspect]
     Indication: ASTROCYTOMA
     Dosage: 5 MG DAILY
     Route: 048
     Dates: start: 20110330, end: 20110930
  3. VITAMIN D [Concomitant]
  4. LAMICTAL [Concomitant]
  5. PROZAC [Concomitant]
  6. ASCORBIC ACID [Concomitant]
  7. RETIGABINE [Concomitant]
  8. INSULIN PUMP [Concomitant]

REACTIONS (12)
  - HAIR TEXTURE ABNORMAL [None]
  - TONGUE DISORDER [None]
  - GASTROENTERITIS VIRAL [None]
  - WEIGHT INCREASED [None]
  - NASOPHARYNGITIS [None]
  - ANTICONVULSANT DRUG LEVEL DECREASED [None]
  - TOOTH EROSION [None]
  - ALOPECIA [None]
  - GASTROOESOPHAGEAL REFLUX DISEASE [None]
  - GRAND MAL CONVULSION [None]
  - BLOOD GLUCOSE INCREASED [None]
  - GINGIVAL SWELLING [None]
